FAERS Safety Report 7228404-2 (Version None)
Quarter: 2011Q1

REPORT INFORMATION
  Report Type: 
  Country: None (occurrence: None)
  Receive Date: 20110114
  Receipt Date: 20110112
  Transmission Date: 20110831
  Serious: Yes (Life-Threatening)
  Sender: FDA-Public Use
  Company Number: UG-ABBOTT-11P-167-0696978-00

PATIENT

DRUGS (3)
  1. RALTEGRAVIR [Concomitant]
     Indication: PRODUCT USED FOR UNKNOWN INDICATION
     Dates: start: 20101015, end: 20101210
  2. ALUVIA TABLETS [Suspect]
     Indication: HIV INFECTION
     Route: 048
     Dates: start: 20101015
  3. TENOFAVIR/LAMIVUDINE [Concomitant]
     Indication: PRODUCT USED FOR UNKNOWN INDICATION
     Dosage: ONGOING
     Dates: start: 20101210

REACTIONS (1)
  - MALARIA [None]
